FAERS Safety Report 9367146 (Version 1)
Quarter: 2013Q2

REPORT INFORMATION
  Report Type: Spontaneous
  Country: US (occurrence: US)
  Receive Date: 20130625
  Receipt Date: 20130625
  Transmission Date: 20140414
  Serious: No
  Sender: FDA-Public Use
  Company Number: US-ASTELLAS-2012US004360

PATIENT
  Sex: 0

DRUGS (7)
  1. VESICARE [Suspect]
     Indication: MICTURITION URGENCY
     Dosage: 10 MG, UID/QD
     Route: 048
     Dates: start: 201110, end: 201203
  2. VESICARE [Suspect]
     Dosage: 5 MG, UNKNOWN/D
     Route: 048
     Dates: start: 201203, end: 201204
  3. PRILOSEC [Suspect]
     Indication: DYSPEPSIA
     Dosage: UNK
     Route: 065
     Dates: start: 201110
  4. VIAGRA [Suspect]
     Indication: PRODUCT USED FOR UNKNOWN INDICATION
     Dosage: UNK
     Route: 065
  5. CIALIS [Suspect]
     Indication: PRODUCT USED FOR UNKNOWN INDICATION
     Dosage: UNK
     Route: 065
  6. TROSPIUM [Suspect]
     Indication: PRODUCT USED FOR UNKNOWN INDICATION
     Dosage: UNK
     Route: 065
     Dates: start: 20120509
  7. METAMUCIL [Concomitant]
     Indication: PRODUCT USED FOR UNKNOWN INDICATION
     Dosage: 1 TSP, UID/QD
     Route: 065

REACTIONS (9)
  - Diarrhoea [Recovered/Resolved]
  - Arthralgia [Unknown]
  - Flatulence [Not Recovered/Not Resolved]
  - Diarrhoea [Recovering/Resolving]
  - Abnormal faeces [Not Recovered/Not Resolved]
  - Vomiting [Recovered/Resolved]
  - Nausea [Recovered/Resolved]
  - Cystitis [Unknown]
  - Constipation [Unknown]
